FAERS Safety Report 9502808 (Version 1)
Quarter: 2013Q1

REPORT INFORMATION
  Report Type: Spontaneous
  Country: US (occurrence: None)
  Receive Date: 20130225
  Receipt Date: 20130225
  Transmission Date: 20140127
  Serious: No
  Sender: FDA-Public Use
  Company Number: 365116

PATIENT
  Sex: Female

DRUGS (3)
  1. VICTOZA (LIRAGLUTIDE) SOLUTION FOR INJECTION, 6MG/ML [Suspect]
     Indication: PRODUCT USED FOR UNKNOWN INDICATION
     Route: 058
  2. HUMALOG (INSULIN LISPRO) [Suspect]
     Indication: PRODUCT USED FOR UNKNOWN INDICATION
     Route: 058
  3. LANTUS (INSULIN GLARGINE) [Suspect]
     Route: 058

REACTIONS (3)
  - Decreased appetite [None]
  - Gastrooesophageal reflux disease [None]
  - Glycosylated haemoglobin increased [None]
